FAERS Safety Report 6668726-7 (Version None)
Quarter: 2010Q1

REPORT INFORMATION
  Report Type: 
  Country: None (occurrence: None)
  Receive Date: 20100318
  Receipt Date: 20100311
  Transmission Date: 20100710
  Serious: Yes (Death, Life-Threatening, Other)
  Sender: FDA-Public Use
  Company Number: THYM-1001046

PATIENT
  Age: 70 Year
  Sex: Female
  Weight: 65.4 kg

DRUGS (14)
  1. THYMOGLOBULIN [Suspect]
     Indication: APLASTIC ANAEMIA
     Dosage: 244.5 MG, QD, INTRAVENOUS
     Route: 042
     Dates: start: 20090415, end: 20090420
  2. CYCLOSPORINE [Concomitant]
  3. ACETAMINOPHEN [Concomitant]
  4. HYDROCORTONE [Concomitant]
  5. PIRITION (CHLORPHENAMINE MALEATE) [Concomitant]
  6. CO-DYDRAMOL (DIHYDROCODEINE BITARTRATE, PARACETAMOL) [Concomitant]
  7. OMEPRAZOLE [Concomitant]
  8. PREDNISOLONE (PRENISOLONE) [Concomitant]
  9. DOSULEPIN (DOSULEPIN) [Concomitant]
  10. MEROPENEM (METOPENEM) [Concomitant]
  11. VANCOMYCIN [Concomitant]
  12. INTRACONZOLE [Concomitant]
  13. METHYLPREDNISOLONE (METHYYPREDNISOLONE) [Concomitant]
  14. CODEINE SUL TAB [Concomitant]

REACTIONS (7)
  - DIALYSIS [None]
  - HAEMORRHAGE INTRACRANIAL [None]
  - HYPOXIA [None]
  - INTERVERTEBRAL DISCITIS [None]
  - NEUTROPENIC SEPSIS [None]
  - RENAL FAILURE ACUTE [None]
  - RESPIRATORY DISTRESS [None]
